FAERS Safety Report 24958594 (Version 1)
Quarter: 2025Q1

REPORT INFORMATION
  Report Type: Other
  Country: CN (occurrence: CN)
  Receive Date: 20250212
  Receipt Date: 20250212
  Transmission Date: 20250408
  Serious: Yes (Death, Hospitalization)
  Sender: ESJAY PHARMA
  Company Number: CN-ESJAY PHARMA-000011

PATIENT
  Age: 42 Year
  Sex: Male

DRUGS (8)
  1. METRONIDAZOLE [Suspect]
     Active Substance: METRONIDAZOLE
     Indication: Meningoencephalitis amoebic
  2. MEROPENEM [Concomitant]
     Active Substance: MEROPENEM
     Indication: Meningoencephalitis amoebic
  3. FLUCONAZOLE [Concomitant]
     Active Substance: FLUCONAZOLE
     Indication: Meningoencephalitis amoebic
  4. MANNITOL [Concomitant]
     Active Substance: MANNITOL
     Indication: Intracranial pressure increased
  5. NOREPINEPHRINE [Concomitant]
     Active Substance: NOREPINEPHRINE
     Indication: Hypotension
  6. FLUCONAZOLE [Concomitant]
     Active Substance: FLUCONAZOLE
     Indication: Naegleria infection
  7. MEROPENEM [Concomitant]
     Active Substance: MEROPENEM
     Indication: Naegleria infection
  8. METRONIDAZOLE [Suspect]
     Active Substance: METRONIDAZOLE
     Indication: Naegleria infection

REACTIONS (1)
  - Drug ineffective for unapproved indication [Fatal]
